FAERS Safety Report 13149423 (Version 2)
Quarter: 2017Q3

REPORT INFORMATION
  Report Type: Report from Study
  Country: US (occurrence: US)
  Receive Date: 20170125
  Receipt Date: 20170714
  Transmission Date: 20171127
  Serious: Yes (Other)
  Sender: FDA-Public Use
  Company Number: PHEH2017US002149

PATIENT
  Age: 76 Year
  Sex: Female

DRUGS (2)
  1. SANDOSTATIN LAR DEPOT [Suspect]
     Active Substance: OCTREOTIDE ACETATE
     Indication: PRODUCT USED FOR UNKNOWN INDICATION
     Route: 065
  2. NEORAL [Suspect]
     Active Substance: CYCLOSPORINE
     Indication: PRODUCT USED FOR UNKNOWN INDICATION
     Dosage: UNK
     Route: 065
     Dates: start: 20090101

REACTIONS (3)
  - Cerebrovascular accident [Recovering/Resolving]
  - Loss of consciousness [Unknown]
  - Malaise [Unknown]

NARRATIVE: CASE EVENT DATE: 20161214
